FAERS Safety Report 5779715-9 (Version None)
Quarter: 2008Q2

REPORT INFORMATION
  Report Type: 
  Country: None (occurrence: None)
  Receive Date: 20080619
  Receipt Date: 20080616
  Transmission Date: 20081010
  Serious: Yes (Other)
  Sender: FDA-Public Use
  Company Number: US-GILEAD-2008-0016321

PATIENT
  Sex: Female
  Weight: 127.12 kg

DRUGS (4)
  1. ATRIPLA [Suspect]
     Indication: HIV INFECTION
     Dates: start: 20071022, end: 20080108
  2. DYAZIDE [Concomitant]
     Indication: HYPERTENSION
     Dates: start: 20040421
  3. KALETRA [Concomitant]
     Indication: HIV INFECTION
     Dates: start: 20080320
  4. COMBIVIR [Concomitant]
     Indication: HIV INFECTION
     Dates: start: 20080320

REACTIONS (2)
  - ABORTION SPONTANEOUS [None]
  - ANENCEPHALY [None]
